FAERS Safety Report 9201978 (Version 2)
Quarter: 2013Q4

REPORT INFORMATION
  Report Type: Report from Study
  Country: CA (occurrence: CA)
  Receive Date: 20130401
  Receipt Date: 20131118
  Transmission Date: 20140711
  Serious: Yes (Other)
  Sender: FDA-Public Use
  Company Number: CA-ROCHE-1208248

PATIENT
  Age: 78 Year
  Sex: Male
  Weight: 70.3 kg

DRUGS (6)
  1. RITUXAN [Suspect]
     Indication: CHRONIC LYMPHOCYTIC LEUKAEMIA
     Route: 042
     Dates: start: 201109
  2. SYNTHROID [Concomitant]
  3. PREDNISONE [Concomitant]
  4. VITAMIN B12 [Concomitant]
  5. VITAMIN C [Concomitant]
  6. SALBUTAMOL [Concomitant]

REACTIONS (3)
  - Asthma [Not Recovered/Not Resolved]
  - Sleep disorder [Not Recovered/Not Resolved]
  - Weight increased [Unknown]
